FAERS Safety Report 17008492 (Version 1)
Quarter: 2019Q4

REPORT INFORMATION
  Report Type: Spontaneous
  Country: FR (occurrence: FR)
  Receive Date: 20191108
  Receipt Date: 20191108
  Transmission Date: 20200122
  Serious: Yes (Hospitalization, Other)
  Sender: FDA-Public Use
  Company Number: FR-ACCORD-160312

PATIENT
  Age: 50 Year
  Sex: Male

DRUGS (5)
  1. OXALIPLATIN. [Concomitant]
     Active Substance: OXALIPLATIN
     Indication: TRANSITIONAL CELL CARCINOMA
     Dosage: FOLFOX
  2. ONDANSETRON [Suspect]
     Active Substance: ONDANSETRON
     Indication: PREMEDICATION
  3. FOLINIC ACID [Concomitant]
     Active Substance: LEUCOVORIN
     Indication: LUNG ADENOCARCINOMA
     Dosage: FOLFOX
  4. METHYLPREDNISOLONE. [Suspect]
     Active Substance: METHYLPREDNISOLONE
     Indication: PREMEDICATION
  5. FLUOROURACIL. [Concomitant]
     Active Substance: FLUOROURACIL
     Indication: TRANSITIONAL CELL CARCINOMA
     Dosage: FOLFOX

REACTIONS (6)
  - Dyspnoea [Unknown]
  - Thrombocytopenia [Recovered/Resolved]
  - Chest pain [Unknown]
  - Pyrexia [Unknown]
  - Haematuria [Unknown]
  - Chills [Unknown]
